FAERS Safety Report 22837330 (Version 7)
Quarter: 2025Q4

REPORT INFORMATION
  Report Type: Report from Study
  Country: JP (occurrence: JP)
  Receive Date: 20230818
  Receipt Date: 20251221
  Transmission Date: 20260118
  Serious: Yes (Death, Hospitalization, Other)
  Sender: BIOGEN
  Company Number: JP-BIOGEN-2023BI01219413

PATIENT
  Age: 68 Year
  Sex: Male
  Weight: 65 kg

DRUGS (9)
  1. SPINRAZA [Suspect]
     Active Substance: NUSINERSEN
     Indication: Spinal muscular atrophy
  2. SPINRAZA [Suspect]
     Active Substance: NUSINERSEN
     Dates: start: 20230117
  3. AMPICILLIN SODIUM\SULBACTAM SODIUM [Suspect]
     Active Substance: AMPICILLIN SODIUM\SULBACTAM SODIUM
  4. MEROPENEM [Suspect]
     Active Substance: MEROPENEM
  5. ALBUMINAR [Suspect]
     Active Substance: ALBUMIN HUMAN
  6. NAFTOPIDIL [Concomitant]
     Active Substance: NAFTOPIDIL
     Indication: Benign prostatic hyperplasia
  7. XYLOCAINE [Concomitant]
     Active Substance: LIDOCAINE HYDROCHLORIDE
     Indication: Anaesthesia procedure
     Dosage: FREQUENCY TEXT:AT EACH SPINRAZA ADMINISTRATION
  8. ROSUVASTATIN CALCIUM [Concomitant]
     Active Substance: ROSUVASTATIN CALCIUM
     Indication: Dyslipidaemia
  9. LANSOPRAZOLE [Concomitant]
     Active Substance: LANSOPRAZOLE
     Indication: Prophylaxis
     Dates: start: 20230406, end: 20240815

REACTIONS (10)
  - Bronchopulmonary aspergillosis [Fatal]
  - Cerebral infarction [Recovered/Resolved]
  - Malaise [Not Recovered/Not Resolved]
  - Dysphagia [Unknown]
  - Haemoptysis [Not Recovered/Not Resolved]
  - Pneumonia [Fatal]
  - Hypoalbuminaemia [Not Recovered/Not Resolved]
  - Drug eruption [Recovered/Resolved]
  - Eosinophilia [Recovered/Resolved]
  - Electrocardiogram abnormal [Not Recovered/Not Resolved]

NARRATIVE: CASE EVENT DATE: 20200401
